FAERS Safety Report 10169990 (Version 1)
Quarter: 2014Q2

REPORT INFORMATION
  Report Type: Spontaneous
  Country: FR (occurrence: FR)
  Receive Date: 20140513
  Receipt Date: 20140513
  Transmission Date: 20141212
  Serious: Yes (Death, Hospitalization)
  Sender: FDA-Public Use
  Company Number: FR-BRISTOL-MYERS SQUIBB COMPANY-20711032

PATIENT
  Age: 68 Year
  Sex: Male

DRUGS (11)
  1. ABILIFY [Suspect]
     Route: 048
     Dates: start: 20140221, end: 20140307
  2. LOPRIL [Concomitant]
     Dates: start: 20140216
  3. GLUCOPHAGE [Concomitant]
     Dosage: 1 DF=1000 NO UNITS
     Dates: start: 20140216
  4. HALDOL [Concomitant]
     Dosage: DROPS
  5. TERCIAN [Concomitant]
     Dates: start: 20140216
  6. LEPTICUR [Concomitant]
     Dates: start: 20140216
  7. TAHOR [Concomitant]
     Dates: start: 20140216
  8. TEMESTA [Concomitant]
     Dates: start: 20140216
  9. VALIUM [Concomitant]
     Dates: start: 20140216
  10. RISPERDAL [Concomitant]
     Dosage: ORODISPERSIBLE
  11. AXEPIM [Concomitant]
     Dates: start: 20140216

REACTIONS (5)
  - Respiratory distress [Fatal]
  - Cardio-respiratory arrest [Fatal]
  - Fall [Unknown]
  - Head injury [Unknown]
  - Respiratory tract congestion [Unknown]
